FAERS Safety Report 17069818 (Version 1)
Quarter: 2019Q4

REPORT INFORMATION
  Report Type: Spontaneous
  Country: US (occurrence: US)
  Receive Date: 20191125
  Receipt Date: 20191125
  Transmission Date: 20200122
  Serious: Yes (Death)
  Sender: FDA-Public Use
  Company Number: US-BEH-2019109680

PATIENT
  Age: 73 Year
  Sex: Male

DRUGS (1)
  1. HUMAN IMMUNOGLOBULIN (INN) [Suspect]
     Active Substance: HUMAN IMMUNOGLOBULIN G
     Indication: HASHIMOTO^S ENCEPHALOPATHY
     Route: 042

REACTIONS (2)
  - Product use in unapproved indication [Fatal]
  - Drug ineffective for unapproved indication [Fatal]
